FAERS Safety Report 8847281 (Version 2)
Quarter: 2012Q4

REPORT INFORMATION
  Report Type: 
  Country: US (occurrence: US)
  Receive Date: 20121018
  Receipt Date: 20121203
  Transmission Date: 20130627
  Serious: Yes (Other)
  Sender: FDA-Public Use
  Company Number: US-ROCHE-783878

PATIENT
  Sex: Female
  Weight: 65.83 kg

DRUGS (9)
  1. ACCUTANE [Suspect]
     Indication: ACNE
     Route: 048
     Dates: start: 200210, end: 200212
  2. ACCUTANE [Suspect]
     Route: 048
     Dates: start: 200411, end: 200501
  3. AMNESTEEM [Suspect]
     Indication: ACNE
     Route: 065
     Dates: start: 200212, end: 200304
  4. AMNESTEEM [Suspect]
     Route: 065
     Dates: start: 200905, end: 200910
  5. CLARAVIS [Suspect]
     Indication: ACNE
     Route: 065
     Dates: start: 200502
  6. OCELLA [Concomitant]
  7. NORTREL [Concomitant]
  8. ADDERALL [Concomitant]
  9. YASMIN [Concomitant]

REACTIONS (6)
  - Colitis ulcerative [Unknown]
  - Inflammatory bowel disease [Unknown]
  - Stress [Unknown]
  - Arthralgia [Unknown]
  - Back pain [Unknown]
  - Irritable bowel syndrome [Unknown]
